FAERS Safety Report 22964983 (Version 2)
Quarter: 2023Q4

REPORT INFORMATION
  Report Type: Report from Study
  Country: KR (occurrence: KR)
  Receive Date: 20230921
  Receipt Date: 20231114
  Transmission Date: 20240109
  Serious: Yes (Other)
  Sender: FDA-Public Use
  Company Number: KR-ASTELLAS-2023US028131

PATIENT
  Age: 52 Year
  Sex: Male

DRUGS (8)
  1. GILTERITINIB [Suspect]
     Active Substance: GILTERITINIB
     Indication: Acute myeloid leukaemia refractory
     Route: 065
     Dates: start: 20221109, end: 20221112
  2. GILTERITINIB [Suspect]
     Active Substance: GILTERITINIB
     Indication: FLT3 gene mutation
     Route: 065
     Dates: start: 20221121, end: 20221128
  3. GILTERITINIB [Suspect]
     Active Substance: GILTERITINIB
     Route: 065
     Dates: start: 20221207, end: 20221215
  4. GILTERITINIB [Suspect]
     Active Substance: GILTERITINIB
     Route: 065
     Dates: start: 20221221, end: 20230315
  5. INSULIN GLARGINE [Concomitant]
     Active Substance: INSULIN GLARGINE
     Indication: Diabetes mellitus
     Route: 058
     Dates: start: 20221207
  6. Ciprobay [Concomitant]
     Indication: Prophylaxis
     Route: 042
     Dates: start: 20221112, end: 20221113
  7. Citopcin [Concomitant]
     Indication: Prophylaxis
     Route: 048
     Dates: start: 20221114, end: 20221123
  8. Citopcin [Concomitant]
     Route: 048
     Dates: start: 20221215, end: 20230103

REACTIONS (1)
  - Cytopenia [Recovered/Resolved]

NARRATIVE: CASE EVENT DATE: 20221111
